FAERS Safety Report 23554000 (Version 2)
Quarter: 2024Q2

REPORT INFORMATION
  Report Type: Spontaneous
  Country: RU (occurrence: RU)
  Receive Date: 20240222
  Receipt Date: 20240501
  Transmission Date: 20240715
  Serious: Yes (Hospitalization, Other)
  Sender: FDA-Public Use
  Company Number: RU-ABBVIE-5649752

PATIENT
  Age: 29 Year
  Sex: Female
  Weight: 120 kg

DRUGS (3)
  1. GLECAPREVIR\PIBRENTASVIR [Suspect]
     Active Substance: GLECAPREVIR\PIBRENTASVIR
     Indication: Hepatitis C
     Dosage: GLECAPREVIR 300 MG / PIBRENTASVIR 120 MG?3 TABLETS PER DAY
     Route: 048
     Dates: start: 20231207, end: 20240122
  2. GLECAPREVIR\PIBRENTASVIR [Suspect]
     Active Substance: GLECAPREVIR\PIBRENTASVIR
     Indication: Hepatitis C
     Dosage: GLECAPREVIR 300 MG / PIBRENTASVIR 120 MG, 3 TABLETS PER DAY AT ONCE
     Route: 048
  3. GLECAPREVIR\PIBRENTASVIR [Suspect]
     Active Substance: GLECAPREVIR\PIBRENTASVIR
     Indication: Hepatitis C
     Dosage: GLECAPREVIR 300 MG / PIBRENTASVIR 120 MG, 3 TABLETS PER DAY AT ONCE
     Route: 048

REACTIONS (2)
  - Renal colic [Recovered/Resolved]
  - Back pain [Recovered/Resolved]

NARRATIVE: CASE EVENT DATE: 20240122
